FAERS Safety Report 9080539 (Version 2)
Quarter: 2013Q2

REPORT INFORMATION
  Report Type: Spontaneous
  Country: US (occurrence: US)
  Receive Date: 20130131
  Receipt Date: 20130505
  Transmission Date: 20140414
  Serious: Yes (Hospitalization)
  Sender: FDA-Public Use
  Company Number: US-B.I. PHARMACEUTICALS,INC./RIDGEFIELD-2013-BI-02035BP

PATIENT
  Age: 62 Year
  Sex: Male
  Weight: 104 kg

DRUGS (10)
  1. SPIRIVA [Suspect]
     Indication: CHRONIC OBSTRUCTIVE PULMONARY DISEASE
     Dosage: 18 MCG
     Route: 055
     Dates: start: 20121101
  2. SPIRIVA [Suspect]
     Indication: EMPHYSEMA
  3. SYMBICORT [Concomitant]
     Indication: EMPHYSEMA
     Route: 055
     Dates: start: 201212
  4. PROAIR [Concomitant]
     Indication: EMPHYSEMA
     Route: 055
     Dates: start: 201212
  5. HYDROCORTISONE [Concomitant]
     Indication: COLITIS
     Route: 054
     Dates: start: 2012
  6. ASACOL [Concomitant]
     Indication: COLITIS
     Dosage: 1200 MG
     Route: 048
     Dates: start: 2012
  7. ALPRAZOLAM [Concomitant]
     Indication: ANXIETY
     Dosage: 1 MG
     Route: 048
     Dates: start: 201212
  8. LISINOPRIL [Concomitant]
     Indication: HYPERTENSION
     Dosage: 40 MG
     Route: 048
     Dates: start: 2009
  9. HYDROCHLOROTHIAZIDE [Concomitant]
     Indication: HYPERTENSION
     Dosage: 12.5 MG
     Route: 048
     Dates: start: 2009
  10. GLYBURIDE [Concomitant]
     Indication: TYPE 2 DIABETES MELLITUS
     Dosage: 10 MG
     Route: 048
     Dates: start: 2009

REACTIONS (9)
  - Dyspnoea [Unknown]
  - Anxiety [Not Recovered/Not Resolved]
  - Back pain [Recovered/Resolved]
  - Spinal compression fracture [Unknown]
  - Product quality issue [Unknown]
  - Product quality issue [Unknown]
  - Sleep apnoea syndrome [Not Recovered/Not Resolved]
  - Tremor [Not Recovered/Not Resolved]
  - Weight increased [Not Recovered/Not Resolved]
